FAERS Safety Report 13961887 (Version 2)
Quarter: 2017Q3

REPORT INFORMATION
  Report Type: Spontaneous
  Country: AM (occurrence: AM)
  Receive Date: 20170912
  Receipt Date: 20170920
  Transmission Date: 20171128
  Serious: Yes (Death)
  Sender: FDA-Public Use
  Company Number: PHHY2017AM133880

PATIENT
  Age: 17 Month
  Sex: Female

DRUGS (1)
  1. CICLOSPORIN [Suspect]
     Active Substance: CYCLOSPORINE
     Indication: NEPHROTIC SYNDROME
     Route: 065

REACTIONS (3)
  - Drug ineffective [Unknown]
  - Nephrotic syndrome [Fatal]
  - Renal impairment [Fatal]
